FAERS Safety Report 9717447 (Version 1)
Quarter: 2013Q4

REPORT INFORMATION
  Report Type: Spontaneous
  Country: US (occurrence: US)
  Receive Date: 20131127
  Receipt Date: 20131127
  Transmission Date: 20140711
  Serious: Yes (Hospitalization)
  Sender: FDA-Public Use
  Company Number: US-GILEAD-2009-0019712

PATIENT
  Sex: Female
  Weight: 69.85 kg

DRUGS (11)
  1. LETAIRIS [Suspect]
     Indication: PULMONARY ARTERIAL HYPERTENSION
     Route: 048
     Dates: start: 20081222
  2. REVATIO [Concomitant]
     Route: 048
  3. WARFARIN [Concomitant]
     Route: 048
  4. SPIRONOLACTONE [Concomitant]
     Route: 048
  5. TIAZAC [Concomitant]
     Route: 048
  6. EFFEXOR [Concomitant]
     Route: 048
  7. DOXEPIN [Concomitant]
     Route: 048
  8. DIAZEPAM [Concomitant]
     Route: 048
  9. CALCIUM [Concomitant]
     Route: 048
  10. BL MAGNESIUM [Concomitant]
     Route: 048
  11. MULTIVITAMINS [Concomitant]
     Route: 048

REACTIONS (2)
  - Headache [Unknown]
  - Local swelling [Unknown]
